FAERS Safety Report 6558360-1 (Version None)
Quarter: 2010Q1

REPORT INFORMATION
  Report Type: 
  Country: None (occurrence: None)
  Receive Date: 20100129
  Receipt Date: 20100120
  Transmission Date: 20100710
  Serious: Yes (Hospitalization)
  Sender: FDA-Public Use
  Company Number: JP-MERCK-1001USA03086

PATIENT
  Age: 76 Year
  Sex: Male

DRUGS (5)
  1. DECADRON [Suspect]
     Indication: NAUSEA
     Route: 048
     Dates: start: 20090301
  2. DECADRON PHOSPHATE [Suspect]
     Indication: PREMEDICATION
     Route: 051
  3. FLUOROURACIL [Concomitant]
     Route: 065
  4. LEUCOVORIN CALCIUM [Concomitant]
     Route: 065
  5. AVASTIN [Concomitant]
     Route: 042

REACTIONS (1)
  - DIABETIC KETOACIDOSIS [None]
